FAERS Safety Report 13206391 (Version 3)
Quarter: 2018Q2

REPORT INFORMATION
  Report Type: Spontaneous
  Country: US (occurrence: US)
  Receive Date: 20170209
  Receipt Date: 20180430
  Transmission Date: 20180711
  Serious: No
  Sender: FDA-Public Use
  Company Number: US-SA-2016SA199635

PATIENT
  Age: 77 Year
  Sex: Female

DRUGS (2)
  1. ALIROCUMAB PREFILLED PEN [Suspect]
     Active Substance: ALIROCUMAB
     Indication: TYPE V HYPERLIPIDAEMIA
     Dates: start: 201609
  2. PRALUENT [Suspect]
     Active Substance: ALIROCUMAB
     Indication: TYPE V HYPERLIPIDAEMIA
     Route: 058
     Dates: start: 201609

REACTIONS (9)
  - Energy increased [Unknown]
  - Weight decreased [Unknown]
  - Nasopharyngitis [Unknown]
  - Dysphagia [Unknown]
  - Decreased appetite [Unknown]
  - Therapeutic response unexpected [Unknown]
  - Chest pain [Unknown]
  - Dyspnoea [Unknown]
  - Dyspepsia [Unknown]

NARRATIVE: CASE EVENT DATE: 201609
